FAERS Safety Report 7277187-9 (Version None)
Quarter: 2010Q4

REPORT INFORMATION
  Report Type: 
  Country: None (occurrence: None)
  Receive Date: 20101201
  Receipt Date: 20100326
  Transmission Date: 20110411
  Serious: Yes (Disabling)
  Sender: FDA-Public Use
  Company Number: USEN-83WLYG

PATIENT

DRUGS (1)
  1. DURAPREP [Suspect]
     Indication: PREOPERATIVE CARE
     Dosage: 26 ML TOPICAL, SINGLE APPLICATION
     Route: 061

REACTIONS (1)
  - THERMAL BURN [None]
